FAERS Safety Report 4609169-7 (Version None)
Quarter: 2005Q1

REPORT INFORMATION
  Report Type: 
  Country: None (occurrence: None)
  Receive Date: 20050315
  Receipt Date: 20031121
  Transmission Date: 20050727
  Serious: Yes (Hospitalization, Other)
  Sender: FDA-Public Use
  Company Number: US-MERCK-0311USA02533

PATIENT
  Age: 49 Year
  Sex: Female
  Weight: 81 kg

DRUGS (1)
  1. VIOXX [Suspect]
     Indication: MONARTHRITIS
     Route: 048
     Dates: start: 20021004, end: 20021029

REACTIONS (18)
  - ANXIETY [None]
  - BACK INJURY [None]
  - CEREBROVASCULAR ACCIDENT [None]
  - CONVULSION [None]
  - EMOTIONAL DISTRESS [None]
  - HYPERTENSION [None]
  - INJURY [None]
  - INTERVERTEBRAL DISC PROTRUSION [None]
  - INTESTINAL FUNCTIONAL DISORDER [None]
  - MYOCARDIAL INFARCTION [None]
  - NECK PAIN [None]
  - NEUROPATHY [None]
  - RADICULITIS [None]
  - RADICULITIS BRACHIAL [None]
  - SPINAL OSTEOARTHRITIS [None]
  - STRESS [None]
  - TENDONITIS [None]
  - URINARY TRACT DISORDER [None]
